FAERS Safety Report 5692704-8 (Version None)
Quarter: 2008Q2

REPORT INFORMATION
  Report Type: 
  Country: None (occurrence: None)
  Receive Date: 20080401
  Receipt Date: 20080228
  Transmission Date: 20081010
  Serious: Yes (Hospitalization)
  Sender: FDA-Public Use
  Company Number: 2008-00231FE

PATIENT
  Age: 12 Year
  Sex: Female

DRUGS (4)
  1. TVE-TROPIN (ZOMACTON) (SOMATROPIN) [Suspect]
     Indication: DWARFISM
     Dosage: 1.5 MG
  2. DEXMETHYLPHENIDATE HYDROCHLORIDE [Concomitant]
  3. ADVAIR HFA [Concomitant]
  4. FLUTICASONE PROPINONATE [Concomitant]

REACTIONS (2)
  - CONSTIPATION [None]
  - COUGH [None]
